FAERS Safety Report 8993598 (Version 1)
Quarter: 2013Q1

REPORT INFORMATION
  Report Type: Spontaneous
  Country: DE (occurrence: DE)
  Receive Date: 20130102
  Receipt Date: 20130102
  Transmission Date: 20140127
  Serious: Yes (Other)
  Sender: FDA-Public Use
  Company Number: DE-JNJFOC-20121211647

PATIENT
  Sex: Female
  Weight: 3.13 kg

DRUGS (4)
  1. TRAMAL [Suspect]
     Indication: PRODUCT USED FOR UNKNOWN INDICATION
     Dosage: 13.1-39.1 GESTATIONAL WEEK
     Route: 064
     Dates: start: 20100705, end: 20110103
  2. FOLIC ACID [Concomitant]
     Indication: PRODUCT USED FOR UNKNOWN INDICATION
     Dosage: 6.4- 12 GESTATIONAL WEEK
     Route: 064
     Dates: start: 20100520
  3. SERTRALINE [Concomitant]
     Indication: PRODUCT USED FOR UNKNOWN INDICATION
     Dosage: 0-4 GESTATIONAL WEEK
     Route: 064
     Dates: start: 20100404
  4. VALORON N [Concomitant]
     Indication: PRODUCT USED FOR UNKNOWN INDICATION
     Dosage: 0-11.5 GESTATIONAL WEEK
     Route: 064
     Dates: start: 20100404, end: 20100625

REACTIONS (2)
  - Drug withdrawal syndrome neonatal [Recovered/Resolved]
  - Foetal exposure during pregnancy [Recovered/Resolved]
